FAERS Safety Report 4741534-X (Version None)
Quarter: 2005Q3

REPORT INFORMATION
  Report Type: 
  Country: None (occurrence: None)
  Receive Date: 20050808
  Receipt Date: 20050713
  Transmission Date: 20060218
  Serious: Yes (Life-Threatening, Hospitalization)
  Sender: FDA-Public Use
  Company Number: S05-CAN-02460-01

PATIENT
  Age: 53 Year
  Sex: Male

DRUGS (1)
  1. TIAZAC [Suspect]
     Indication: BLOOD PRESSURE
     Dosage: 240 MG QD PO
     Route: 048
     Dates: end: 20050101

REACTIONS (3)
  - ANAPHYLACTIC SHOCK [None]
  - ARTHROPOD STING [None]
  - ROAD TRAFFIC ACCIDENT [None]
